FAERS Safety Report 9672045 (Version 2)
Quarter: 2014Q1

REPORT INFORMATION
  Report Type: Report from Study
  Country: JP (occurrence: JP)
  Receive Date: 20131106
  Receipt Date: 20140205
  Transmission Date: 20141002
  Serious: Yes (Hospitalization)
  Sender: FDA-Public Use
  Company Number: JP-GLAXOSMITHKLINE-B0939894A

PATIENT
  Age: 77 Year
  Sex: Male

DRUGS (10)
  1. REQUIP [Suspect]
     Indication: PARKINSON^S DISEASE
     Dosage: 2MG PER DAY
     Route: 048
     Dates: start: 20131004, end: 20131031
  2. NEODOPASTON [Concomitant]
     Indication: PARKINSON^S DISEASE
     Route: 048
  3. DOPS [Concomitant]
     Indication: PARKINSON^S DISEASE
     Route: 048
  4. MUCOSTA [Concomitant]
     Route: 048
  5. MAGMITT [Concomitant]
     Route: 048
     Dates: end: 20131031
  6. LANDSEN [Concomitant]
     Route: 048
  7. PURSENNID [Concomitant]
     Route: 048
  8. RESLIN [Concomitant]
     Route: 048
     Dates: end: 20131218
  9. METLIGINE [Concomitant]
     Route: 048
  10. RISUMIC [Concomitant]
     Route: 048

REACTIONS (1)
  - Pneumonia [Recovering/Resolving]
